FAERS Safety Report 5804879-8 (Version None)
Quarter: 2008Q3

REPORT INFORMATION
  Report Type: 
  Country: None (occurrence: None)
  Receive Date: 20080709
  Receipt Date: 20080701
  Transmission Date: 20090109
  Serious: Yes (Hospitalization)
  Sender: FDA-Public Use
  Company Number: FR-PFIZER INC-2008055521

PATIENT

DRUGS (6)
  1. TAHOR [Suspect]
     Indication: HYPERCHOLESTEROLAEMIA
  2. DEPAKENE [Suspect]
     Indication: EPILEPSY
     Route: 048
     Dates: start: 20080301, end: 20080403
  3. COVERSYL [Suspect]
     Indication: HYPERTENSION
     Route: 048
  4. PROSCAR [Suspect]
     Indication: PROSTATIC ADENOMA
     Route: 048
  5. SKELID [Suspect]
  6. KARDEGIC [Suspect]
     Indication: PROPHYLAXIS
     Route: 048

REACTIONS (2)
  - ABASIA [None]
  - FALL [None]
